FAERS Safety Report 8519200-4 (Version None)
Quarter: 2012Q3

REPORT INFORMATION
  Report Type: 
  Country: None (occurrence: None)
  Receive Date: 20120718
  Receipt Date: 20120713
  Transmission Date: 20120928
  Serious: Yes (Death)
  Sender: FDA-Public Use
  Company Number: US-ELI_LILLY_AND_COMPANY-US201207004330

PATIENT
  Sex: Male

DRUGS (1)
  1. ALIMTA [Suspect]
     Dosage: UNK, SINGLE (ONE DOSE)
     Dates: start: 20120502

REACTIONS (1)
  - DEATH [None]
